FAERS Safety Report 17275274 (Version 1)
Quarter: 2020Q1

REPORT INFORMATION
  Report Type: Other
  Country: GB (occurrence: GB)
  Receive Date: 20200116
  Receipt Date: 20200116
  Transmission Date: 20200409
  Serious: No
  Sender: FDA-Public Use
  Company Number: GB-LUPIN PHARMACEUTICALS INC.-2019-07684

PATIENT
  Age: 55 Year
  Sex: Female
  Weight: 123 kg

DRUGS (2)
  1. NEVIRAPINE. [Concomitant]
     Active Substance: NEVIRAPINE
     Indication: PRODUCT USED FOR UNKNOWN INDICATION
     Dosage: UNK
     Route: 065
  2. ABACAVIR/LAMIVUDIN LUPIN 600 MG / 300 MG FILM COATED TABLETS [Suspect]
     Active Substance: ABACAVIR\LAMIVUDINE
     Indication: HIV TEST POSITIVE
     Dosage: 1 DOSAGE FORM (ABACAVIR 600MG + LAMIVUDINE 300MG)
     Route: 048
     Dates: start: 20190521, end: 20190919

REACTIONS (3)
  - Palpitations [Recovered/Resolved]
  - Anxiety [Recovered/Resolved]
  - Product substitution issue [Unknown]

NARRATIVE: CASE EVENT DATE: 20190521
